FAERS Safety Report 9619439 (Version 2)
Quarter: 2013Q4

REPORT INFORMATION
  Report Type: Report from Study
  Country: US (occurrence: US)
  Receive Date: 20131014
  Receipt Date: 20131014
  Transmission Date: 20140711
  Serious: Yes (Hospitalization, Other)
  Sender: FDA-Public Use
  Company Number: US-CUBIST-2009S1000193

PATIENT
  Age: 67 Year
  Sex: Female
  Weight: 92 kg

DRUGS (9)
  1. BLINDED ECALLANTIDE [Suspect]
     Indication: CORONARY ARTERY BYPASS
     Route: 042
     Dates: start: 20090507, end: 20090507
  2. ASPIRIN [Concomitant]
  3. ATENOLOL [Concomitant]
     Route: 048
  4. SYNTHROID [Concomitant]
  5. PREVACID [Concomitant]
  6. AMBIEN [Concomitant]
     Route: 048
  7. LIPITOR [Concomitant]
  8. CLONIDINE [Concomitant]
     Dates: start: 20090506, end: 20090506
  9. FAMOTIDINE [Concomitant]
     Route: 048
     Dates: start: 20090506

REACTIONS (2)
  - Cerebral infarction [Recovered/Resolved]
  - Atrial fibrillation [Recovered/Resolved]
